FAERS Safety Report 11023048 (Version 2)
Quarter: 2015Q2

REPORT INFORMATION
  Report Type: Report from Study
  Country: US (occurrence: US)
  Receive Date: 20150413
  Receipt Date: 20150508
  Transmission Date: 20150821
  Serious: Yes (Other)
  Sender: FDA-Public Use
  Company Number: US-PURDUE PHARMA-USA-2015-0122397

PATIENT
  Age: 76 Year
  Sex: Female

DRUGS (3)
  1. OXYCONTIN [Suspect]
     Active Substance: OXYCODONE HYDROCHLORIDE
     Indication: OSTEOPOROSIS
     Dosage: UNK
     Route: 048
     Dates: start: 200311
  2. OXYCONTIN [Suspect]
     Active Substance: OXYCODONE HYDROCHLORIDE
     Indication: OSTEOARTHRITIS
  3. OXYCONTIN [Suspect]
     Active Substance: OXYCODONE HYDROCHLORIDE
     Indication: SPINAL COLUMN STENOSIS
     Dosage: 60 MG, BID
     Route: 048
     Dates: start: 20150324

REACTIONS (6)
  - Spinal disorder [Unknown]
  - Vulvovaginal mycotic infection [Unknown]
  - Oral fungal infection [Unknown]
  - Pain [Unknown]
  - Neuropathy peripheral [Unknown]
  - Bronchitis [Unknown]

NARRATIVE: CASE EVENT DATE: 2005
